FAERS Safety Report 7452177-1 (Version None)
Quarter: 2011Q2

REPORT INFORMATION
  Report Type: 
  Country: None (occurrence: None)
  Receive Date: 20110502
  Receipt Date: 20110428
  Transmission Date: 20111010
  Serious: Yes (Other)
  Sender: FDA-Public Use
  Company Number: US-TEVA-278779USA

PATIENT
  Age: 36 Year
  Sex: Female

DRUGS (2)
  1. FLUOXETINE [Suspect]
     Indication: MAJOR DEPRESSION
     Dosage: 20 MILLIGRAM;
     Dates: start: 20090924, end: 20091101
  2. PREDNISONE [Suspect]
     Dates: start: 20091102

REACTIONS (10)
  - CONFUSIONAL STATE [None]
  - MASTICATION DISORDER [None]
  - MOVEMENT DISORDER [None]
  - ARTHRALGIA [None]
  - DYSPHAGIA [None]
  - RHEUMATOID ARTHRITIS [None]
  - JOINT SWELLING [None]
  - PSYCHOTIC DISORDER [None]
  - ANXIETY [None]
  - ACTIVITIES OF DAILY LIVING IMPAIRED [None]
